FAERS Safety Report 6714138-7 (Version None)
Quarter: 2010Q2

REPORT INFORMATION
  Report Type: 
  Country: None (occurrence: None)
  Receive Date: 20100503
  Receipt Date: 20100415
  Transmission Date: 20101027
  Serious: Yes (Hospitalization)
  Sender: FDA-Public Use
  Company Number: 2010000836

PATIENT
  Age: 68 Year
  Sex: Male
  Weight: 60.4 kg

DRUGS (5)
  1. TARCEVA [Suspect]
     Indication: LUNG ADENOCARCINOMA
     Dosage: 150 MG, QD; ORAL
     Route: 048
     Dates: start: 20100115, end: 20100119
  2. WARFARIN POTASSIUM (WARFARIN POTASSIUM) [Suspect]
     Indication: DRUG USE FOR UNKNOWN INDICATION
  3. VALSARTAN [Concomitant]
  4. URIEF [Concomitant]
  5. ZANTAC 150 [Concomitant]

REACTIONS (4)
  - ABDOMINAL PAIN [None]
  - INTERNATIONAL NORMALISED RATIO INCREASED [None]
  - PULMONARY ALVEOLAR HAEMORRHAGE [None]
  - RENAL HAEMORRHAGE [None]
